FAERS Safety Report 24677794 (Version 2)
Quarter: 2024Q4

REPORT INFORMATION
  Report Type: Report from Study
  Country: US (occurrence: US)
  Receive Date: 20241129
  Receipt Date: 20241217
  Transmission Date: 20250115
  Serious: Yes (Hospitalization, Other)
  Sender: ABBVIE
  Company Number: US-ABBVIE-6023162

PATIENT
  Age: 62 Year
  Sex: Female
  Weight: 92.532 kg

DRUGS (2)
  1. SKYRIZI [Suspect]
     Active Substance: RISANKIZUMAB-RZAA
     Indication: Psoriasis
  2. SKYRIZI [Suspect]
     Active Substance: RISANKIZUMAB-RZAA
     Route: 058
     Dates: start: 20211006

REACTIONS (15)
  - Lacunar stroke [Recovering/Resolving]
  - Cerebrovascular accident [Unknown]
  - Nail discolouration [Recovering/Resolving]
  - Musculoskeletal disorder [Unknown]
  - Nail ridging [Unknown]
  - Onychoclasis [Unknown]
  - Psoriasis [Recovering/Resolving]
  - Hypoaesthesia [Unknown]
  - Paraesthesia [Unknown]
  - Cerebrovascular accident [Recovered/Resolved]
  - Lymphadenectomy [Unknown]
  - Atrial fibrillation [Unknown]
  - Muscular weakness [Recovering/Resolving]
  - Nail disorder [Unknown]
  - Neoplasm malignant [Unknown]

NARRATIVE: CASE EVENT DATE: 20240101
